FAERS Safety Report 5162585-X (Version None)
Quarter: 2006Q4

REPORT INFORMATION
  Report Type: 
  Country: None (occurrence: None)
  Receive Date: 20061201
  Receipt Date: 20061120
  Transmission Date: 20070319
  Serious: Yes (Other)
  Sender: FDA-Public Use
  Company Number: PHBS2006NL17961

PATIENT
  Age: 61 Year
  Sex: Female
  Weight: 57 kg

DRUGS (2)
  1. NACLOF (NVO) [Suspect]
     Indication: CATARACT
     Dosage: 1 DRP 3 TIMES A DAY
     Dates: start: 20060807, end: 20060811
  2. INDOCOLLYRE [Suspect]
     Indication: CATARACT
     Dosage: 1 DRP, TID1D
     Dates: start: 20060807, end: 20060811

REACTIONS (1)
  - DEPRESSION [None]
